FAERS Safety Report 21024577 (Version 1)
Quarter: 2022Q2

REPORT INFORMATION
  Report Type: Spontaneous
  Country: ES (occurrence: ES)
  Receive Date: 20220629
  Receipt Date: 20220629
  Transmission Date: 20220721
  Serious: Yes (Other)
  Sender: FDA-Public Use
  Company Number: None

PATIENT
  Age: 50 Year
  Sex: Male

DRUGS (4)
  1. METFORMIN HYDROCHLORIDE [Suspect]
     Active Substance: METFORMIN HYDROCHLORIDE
     Indication: Type 2 diabetes mellitus
     Dosage: 1000 MILLIGRAM, 1000.0 MG IRREGULAR
     Route: 048
     Dates: start: 20220420
  2. VENTOLIN [Concomitant]
     Active Substance: ALBUTEROL SULFATE
     Indication: Asthma
     Dosage: 1 DOSAGE FORM, Q8H (1.0 PUFF EVERY 8 HOURS)
     Route: 065
     Dates: start: 20090302
  3. AMLODIPINE BESYLATE [Concomitant]
     Active Substance: AMLODIPINE BESYLATE
     Indication: Hypertension
     Dosage: 1 DOSAGE FORM, QD (1.0 COMP EVERY/24H)
     Route: 048
     Dates: start: 20090303
  4. FLUTICASONE PROPIONATE [Concomitant]
     Active Substance: FLUTICASONE PROPIONATE
     Indication: Asthma
     Dosage: 2 DOSAGE FORM, QD, 2.0 PUFF EVERY/24H
     Route: 045
     Dates: start: 20151127

REACTIONS (1)
  - Urticaria aquagenic [Recovered/Resolved]

NARRATIVE: CASE EVENT DATE: 20220529
